FAERS Safety Report 13622436 (Version 1)
Quarter: 2017Q2

REPORT INFORMATION
  Report Type: Spontaneous
  Country: US (occurrence: US)
  Receive Date: 20170607
  Receipt Date: 20170607
  Transmission Date: 20170830
  Serious: No
  Sender: FDA-Public Use
  Company Number: US-ROCHE-1753960

PATIENT
  Sex: Female

DRUGS (2)
  1. CAPECITABINE. [Suspect]
     Active Substance: CAPECITABINE
     Indication: PRODUCT USED FOR UNKNOWN INDICATION
     Route: 048
     Dates: start: 201510
  2. CAPECITABINE. [Suspect]
     Active Substance: CAPECITABINE
     Dosage: DAY 1-14 OF A 21 DAY CYCLE
     Route: 065

REACTIONS (1)
  - Pain in extremity [Unknown]
